FAERS Safety Report 4456094-0 (Version None)
Quarter: 2004Q3

REPORT INFORMATION
  Report Type: 
  Country: None (occurrence: None)
  Receive Date: 20040922
  Receipt Date: 20040913
  Transmission Date: 20050211
  Serious: Yes (Hospitalization)
  Sender: FDA-Public Use
  Company Number: PHBS2004GB12270

PATIENT
  Age: 32 Year
  Sex: Female

DRUGS (5)
  1. CARBAMAZEPINE [Suspect]
     Indication: CONVULSION
     Route: 048
  2. PROPYLTHIOURACIL [Concomitant]
     Indication: HYPERTHYROIDISM
  3. BENZODIAZEPINES [Concomitant]
     Indication: CONVULSION
     Route: 042
  4. PHENYTOIN [Concomitant]
     Indication: CONVULSION
  5. GENERAL ANAESTHETICS, OTHER [Concomitant]

REACTIONS (12)
  - ASPARTATE AMINOTRANSFERASE INCREASED [None]
  - DRUG EXPOSURE DURING PREGNANCY [None]
  - HYPEREMESIS GRAVIDARUM [None]
  - HYPOALBUMINAEMIA [None]
  - HYPOKALAEMIA [None]
  - HYPONATRAEMIA [None]
  - HYPOPHOSPHATAEMIA [None]
  - NAUSEA [None]
  - STOMA SITE ABSCESS [None]
  - URINARY TRACT INFECTION BACTERIAL [None]
  - VOMITING [None]
  - WEIGHT DECREASED [None]
